FAERS Safety Report 5298044-3 (Version None)
Quarter: 2007Q2

REPORT INFORMATION
  Report Type: 
  Country: None (occurrence: None)
  Receive Date: 20070416
  Receipt Date: 20070403
  Transmission Date: 20071010
  Serious: Yes (Hospitalization)
  Sender: FDA-Public Use
  Company Number: JP-JNJFOC-20061004174

PATIENT
  Sex: Female
  Weight: 53 kg

DRUGS (16)
  1. REMICADE [Suspect]
     Route: 042
  2. REMICADE [Suspect]
     Route: 042
  3. REMICADE [Suspect]
     Route: 042
  4. REMICADE [Suspect]
     Indication: RHEUMATOID ARTHRITIS
     Route: 042
  5. RHEUMATREX [Suspect]
     Route: 048
  6. RHEUMATREX [Suspect]
     Route: 048
  7. RHEUMATREX [Suspect]
     Indication: RHEUMATOID ARTHRITIS
     Route: 048
  8. METALCAPTASE [Suspect]
     Indication: DRUG USE FOR UNKNOWN INDICATION
     Route: 048
  9. PREDNISOLONE [Concomitant]
     Indication: RHEUMATOID ARTHRITIS
     Route: 048
  10. JUVELA N [Concomitant]
     Route: 048
  11. JUVELA N [Concomitant]
     Indication: HYPERLIPIDAEMIA
     Route: 048
  12. VOLTAREN [Concomitant]
     Indication: RHEUMATOID ARTHRITIS
     Dosage: 70 MG, 35 MG
     Route: 048
  13. SELBEX [Concomitant]
     Dosage: 1 TAB 3 IN 1 DAY
     Route: 048
  14. SELBEX [Concomitant]
     Indication: GASTRIC ULCER
     Dosage: 1 TAB 3 IN 1 DAY
     Route: 048
  15. SALIGREN [Concomitant]
     Dosage: 1 TAB 2 IN 1 DAY
     Route: 048
  16. SALIGREN [Concomitant]
     Indication: SJOGREN'S SYNDROME
     Dosage: 1 TAB 2 TABS IN 1 DAY
     Route: 048

REACTIONS (2)
  - HEPATIC FUNCTION ABNORMAL [None]
  - SALMONELLOSIS [None]
